FAERS Safety Report 24891907 (Version 2)
Quarter: 2025Q1

REPORT INFORMATION
  Report Type: Spontaneous
  Country: JP (occurrence: JP)
  Receive Date: 20250127
  Receipt Date: 20250301
  Transmission Date: 20250409
  Serious: No
  Sender: AMNEAL
  Company Number: JP-AMNEAL PHARMACEUTICALS-2025-AMRX-00156

PATIENT

DRUGS (4)
  1. ONGENTYS [Suspect]
     Active Substance: OPICAPONE
     Indication: Parkinson^s disease
     Route: 048
     Dates: start: 2020, end: 20250115
  2. ONGENTYS [Suspect]
     Active Substance: OPICAPONE
     Route: 048
     Dates: start: 2025
  3. LEVODOPA [Suspect]
     Active Substance: LEVODOPA
     Indication: Parkinson^s disease
     Route: 048
     Dates: end: 20250115
  4. LEVODOPA [Suspect]
     Active Substance: LEVODOPA
     Route: 048

REACTIONS (5)
  - Dyskinesia [Unknown]
  - Exercise tolerance decreased [Unknown]
  - Hypophagia [Unknown]
  - Weight decreased [Unknown]
  - Underdose [Unknown]

NARRATIVE: CASE EVENT DATE: 20250101
